FAERS Safety Report 11196689 (Version 4)
Quarter: 2015Q3

REPORT INFORMATION
  Report Type: Spontaneous
  Country: US (occurrence: US)
  Receive Date: 20150617
  Receipt Date: 20150728
  Transmission Date: 20151125
  Serious: Yes (Hospitalization, Other)
  Sender: FDA-Public Use
  Company Number: US-PFIZER INC-2015199977

PATIENT
  Age: 15 Year
  Sex: Female

DRUGS (11)
  1. ZOLOFT [Suspect]
     Active Substance: SERTRALINE HYDROCHLORIDE
     Indication: GENERALISED ANXIETY DISORDER
     Dosage: 75 MG, 1X/DAY
     Route: 048
     Dates: start: 20150226, end: 2015
  2. ZOLOFT [Suspect]
     Active Substance: SERTRALINE HYDROCHLORIDE
     Indication: MAJOR DEPRESSION
     Dosage: 50 MG, 1X/DAY
     Route: 048
     Dates: start: 20150202, end: 20150225
  3. ZOLOFT [Suspect]
     Active Substance: SERTRALINE HYDROCHLORIDE
     Dosage: 100 MG, 1X/DAY
  4. SEROQUEL [Concomitant]
     Active Substance: QUETIAPINE FUMARATE
     Indication: AGITATION
     Dosage: 300 MG, 1X/DAY
     Dates: start: 201504
  5. VISTARIL [Concomitant]
     Active Substance: HYDROXYZINE PAMOATE
     Indication: ANXIETY
  6. BUSPAR [Concomitant]
     Active Substance: BUSPIRONE HYDROCHLORIDE
     Indication: ANXIETY
     Dosage: UNK
  7. MELATONIN [Suspect]
     Active Substance: MELATONIN
     Dosage: UNK
  8. ALEVE [Suspect]
     Active Substance: NAPROXEN SODIUM
     Dosage: UNK
  9. ZOLOFT [Suspect]
     Active Substance: SERTRALINE HYDROCHLORIDE
     Dosage: 150 MG, UNK
     Route: 048
  10. IBUPROFEN. [Suspect]
     Active Substance: IBUPROFEN
     Dosage: UNK
  11. VISTARIL [Concomitant]
     Active Substance: HYDROXYZINE PAMOATE
     Indication: SLEEP DISORDER
     Dosage: 25 MG, 3X/DAY
     Dates: start: 20150202

REACTIONS (7)
  - Product use issue [Unknown]
  - Suicidal ideation [Not Recovered/Not Resolved]
  - Condition aggravated [Unknown]
  - Drug ineffective [Unknown]
  - Anxiety [Unknown]
  - Intentional overdose [Unknown]
  - Suicide attempt [Recovering/Resolving]

NARRATIVE: CASE EVENT DATE: 20150202
